FAERS Safety Report 4382578-X (Version None)
Quarter: 2004Q2

REPORT INFORMATION
  Report Type: 
  Country: None (occurrence: None)
  Receive Date: 20040622
  Receipt Date: 20040611
  Transmission Date: 20050107
  Serious: Yes (Hospitalization)
  Sender: FDA-Public Use
  Company Number: JP-ROCHE-371181

PATIENT
  Age: 57 Year
  Sex: Female

DRUGS (2)
  1. PEGASYS [Suspect]
     Indication: HEPATITIS C
     Route: 058
     Dates: start: 20040528, end: 20040528
  2. PEGASYS [Suspect]
     Route: 058
     Dates: start: 20040504, end: 20040504

REACTIONS (1)
  - RENAL FAILURE ACUTE [None]
